FAERS Safety Report 12953674 (Version 2)
Quarter: 2017Q1

REPORT INFORMATION
  Report Type: Spontaneous
  Country: TR (occurrence: TR)
  Receive Date: 20161118
  Receipt Date: 20170113
  Transmission Date: 20170428
  Serious: Yes (Life-Threatening, Hospitalization, Other)
  Sender: FDA-Public Use
  Company Number: TR-SUN PHARMACEUTICAL INDUSTRIES LTD-2016RR-127788

PATIENT
  Age: 12 Year
  Sex: Female

DRUGS (2)
  1. RISPERIDONE. [Suspect]
     Active Substance: RISPERIDONE
     Indication: ABNORMAL BEHAVIOUR
     Dosage: IRREGULARLY RECEIVING RISPERIDONE FOR A WEEK
     Route: 065
  2. CLOMIPRAMINE [Interacting]
     Active Substance: CLOMIPRAMINE
     Indication: SUICIDE ATTEMPT
     Dosage: 75 MG (9 TABLETS IN A DAY)
     Route: 048

REACTIONS (2)
  - Drug interaction [Recovered/Resolved]
  - Serotonin syndrome [Recovered/Resolved]
